FAERS Safety Report 6421504-6 (Version None)
Quarter: 2009Q4

REPORT INFORMATION
  Report Type: 
  Country: None (occurrence: None)
  Receive Date: 20091030
  Receipt Date: 20091013
  Transmission Date: 20100525
  Serious: No
  Sender: FDA-Public Use
  Company Number: US-TYCO HEALTHCARE/MALLINCKRODT-T200901882

PATIENT
  Age: 28 Year
  Sex: Male
  Weight: 74.376 kg

DRUGS (7)
  1. OXYCODONE HCL EXTENDED-RELEASE [Suspect]
     Indication: PAIN
     Dosage: UNK
     Route: 048
     Dates: start: 20091010, end: 20091011
  2. OXYCODONE [Concomitant]
     Indication: PAIN
     Dosage: 30 MG (2), QID
     Route: 048
  3. BACTRIM [Concomitant]
     Dosage: UNK
     Route: 048
  4. REMERON [Concomitant]
     Dosage: 15 MG, QHS
     Route: 048
  5. MARINOL [Concomitant]
     Indication: NAUSEA
     Dosage: UNK
  6. MARINOL [Concomitant]
     Indication: CACHEXIA
  7. ZOFRAN [Concomitant]
     Indication: ANTIEMETIC SUPPORTIVE CARE
     Dosage: UNK

REACTIONS (4)
  - DRUG INEFFECTIVE [None]
  - NAUSEA [None]
  - PAIN [None]
  - RESTLESSNESS [None]
